FAERS Safety Report 10025552 (Version 1)
Quarter: 2014Q1

REPORT INFORMATION
  Report Type: Spontaneous
  Country: US (occurrence: None)
  Receive Date: 20140314
  Receipt Date: 20140314
  Transmission Date: 20141002
  Serious: Yes (Other)
  Sender: FDA-Public Use
  Company Number: AUR-APL-2013-10871

PATIENT
  Age: 79 Year
  Sex: Male
  Weight: 74.84 kg

DRUGS (2)
  1. LOSARTAN+HYDROCHLOROTHIAZIDE (HYDROCHLOROTHIAZIDE, LOSARTAN) [Suspect]
     Indication: HYPERTENSION
     Route: 048
  2. AMLODIPINE (AMLODIPINE) [Concomitant]

REACTIONS (7)
  - Product contamination physical [None]
  - Product quality issue [None]
  - Poor quality drug administered [None]
  - Laceration [None]
  - Skin haemorrhage [None]
  - Injury [None]
  - Product quality issue [None]
